FAERS Safety Report 20990899 (Version 3)
Quarter: 2025Q4

REPORT INFORMATION
  Report Type: Spontaneous
  Country: EU (occurrence: EU)
  Receive Date: 20220622
  Receipt Date: 20251210
  Transmission Date: 20260118
  Serious: Yes (Other)
  Sender: AUROBINDO
  Company Number: EU-PFIZER INC-202200806486

PATIENT
  Age: 25 Year
  Sex: Male

DRUGS (9)
  1. LINEZOLID [Suspect]
     Active Substance: LINEZOLID
     Indication: Sepsis
     Dosage: 1200 MILLIGRAM, ONCE A DAY
  2. AMIKACIN SULFATE [Suspect]
     Active Substance: AMIKACIN SULFATE
     Indication: Sepsis
     Dosage: 2 GRAM, ONCE A DAY
  3. AVIBACTAM SODIUM\CEFTAZIDIME [Suspect]
     Active Substance: AVIBACTAM SODIUM\CEFTAZIDIME
     Indication: Sepsis
     Dosage: 7.5 GRAM, ONCE A DAY
  4. MEROPENEM [Suspect]
     Active Substance: MEROPENEM
     Indication: Sepsis
     Dosage: 8 GRAM, ONCE A DAY
     Dates: start: 2021
  5. VANCOMYCIN [Suspect]
     Active Substance: VANCOMYCIN
     Indication: Sepsis
     Dosage: 2 GRAM, ONCE A DAY
  6. Anidulafungin4 [Concomitant]
     Indication: Pleural effusion
     Dosage: 200 MILLIGRAM, TOTAL
     Route: 065
  7. Anidulafungin4 [Concomitant]
     Dosage: 100 MILLIGRAM
  8. NOREPINEPHRINE4 [Concomitant]
     Indication: Septic shock
     Dosage: 0.6 MICROGRAM/KG/MIN
     Route: 065
  9. NOREPINEPHRINE4 [Concomitant]
     Dosage: 0.2 MICROGRAM/KG/MIN
     Route: 065

REACTIONS (1)
  - Cutaneous mucormycosis [Recovered/Resolved]

NARRATIVE: CASE EVENT DATE: 20210101
